FAERS Safety Report 5331439-8 (Version None)
Quarter: 2007Q2

REPORT INFORMATION
  Report Type: 
  Country: None (occurrence: None)
  Receive Date: 20070522
  Receipt Date: 20040601
  Transmission Date: 20071010
  Serious: Yes (Hospitalization, Other)
  Sender: FDA-Public Use
  Company Number: JP-PFIZER INC-2004037149

PATIENT
  Age: 39 Year
  Sex: Female

DRUGS (4)
  1. ZYRTEC [Suspect]
     Indication: NEURODERMATITIS
     Dosage: DAILY DOSE:10MG
     Route: 048
     Dates: start: 20021114, end: 20040409
  2. HYDROXYZINE PAMOATE [Concomitant]
     Indication: NEURODERMATITIS
     Dosage: DAILY DOSE:50MG
     Route: 048
     Dates: start: 20021114, end: 20040409
  3. POTASSIUM CITRATE [Concomitant]
     Route: 048
     Dates: start: 20021114, end: 20040301
  4. DICLOFENAC SODIUM [Concomitant]
     Route: 048
     Dates: start: 20040209, end: 20040215

REACTIONS (6)
  - EOSINOPHIL COUNT INCREASED [None]
  - EOSINOPHILIA [None]
  - HEPATIC FUNCTION ABNORMAL [None]
  - NASAL POLYPECTOMY [None]
  - PYREXIA [None]
  - WHITE BLOOD CELL COUNT ABNORMAL [None]
